FAERS Safety Report 22072594 (Version 1)
Quarter: 2023Q1

REPORT INFORMATION
  Report Type: Report from Study
  Country: US (occurrence: US)
  Receive Date: 20230308
  Receipt Date: 20230308
  Transmission Date: 20230418
  Serious: Yes (Other)
  Sender: FDA-Public Use
  Company Number: US-BEH-2023156033

PATIENT
  Age: 70 Year
  Sex: Female
  Weight: 73.923 kg

DRUGS (1)
  1. HIZENTRA [Suspect]
     Active Substance: HUMAN IMMUNOGLOBULIN G
     Indication: Primary immunodeficiency syndrome
     Dosage: 14 GRAM, QW
     Route: 058
     Dates: start: 20000416

REACTIONS (5)
  - Breast cancer female [Unknown]
  - Injection site bruising [Unknown]
  - Pruritus [Unknown]
  - Needle issue [Unknown]
  - Eye disorder [Unknown]

NARRATIVE: CASE EVENT DATE: 20230124
